FAERS Safety Report 24128776 (Version 2)
Quarter: 2024Q4

REPORT INFORMATION
  Report Type: Spontaneous
  Country: US (occurrence: US)
  Receive Date: 20240723
  Receipt Date: 20241022
  Transmission Date: 20250115
  Serious: No
  Sender: SANOFI AVENTIS
  Company Number: US-SA-SAC20240718000402

PATIENT
  Age: 75 Year
  Sex: Male

DRUGS (1)
  1. DUPIXENT [Suspect]
     Active Substance: DUPILUMAB
     Indication: Asthma
     Dosage: 300 MG, QOW
     Route: 058

REACTIONS (6)
  - Seasonal allergy [Unknown]
  - Dyspnoea [Unknown]
  - Injection site paraesthesia [Unknown]
  - Intentional product misuse [Unknown]
  - Toothache [Unknown]
  - Dry eye [Not Recovered/Not Resolved]
